FAERS Safety Report 20429087 (Version 1)
Quarter: 2022Q1

REPORT INFORMATION
  Report Type: Report from Study
  Country: FR (occurrence: FR)
  Receive Date: 20220204
  Receipt Date: 20220204
  Transmission Date: 20220423
  Serious: Yes (Hospitalization, Other)
  Sender: FDA-Public Use
  Company Number: FR-UNICANCER-201900753

PATIENT
  Age: 73 Year
  Sex: Male
  Weight: 58.5 kg

DRUGS (3)
  1. REGORAFENIB [Suspect]
     Active Substance: REGORAFENIB
     Indication: Gastrooesophageal cancer
     Dosage: 160 MG
     Route: 048
     Dates: start: 20190911, end: 20190913
  2. IRINOTECAN [Suspect]
     Active Substance: IRINOTECAN
     Indication: Gastrooesophageal cancer
     Dosage: 316.6 MG
     Route: 042
     Dates: start: 20190910, end: 20190910
  3. AMLODIPINE BESYLATE [Concomitant]
     Active Substance: AMLODIPINE BESYLATE
     Indication: Hypertension
     Dosage: UNK
     Route: 048
     Dates: start: 20190912

REACTIONS (2)
  - Vomiting [Recovered/Resolved with Sequelae]
  - Febrile neutropenia [Recovered/Resolved]

NARRATIVE: CASE EVENT DATE: 20190914
